FAERS Safety Report 4640984-X (Version None)
Quarter: 2005Q2

REPORT INFORMATION
  Report Type: 
  Country: None (occurrence: None)
  Receive Date: 20050421
  Receipt Date: 20050223
  Transmission Date: 20051028
  Serious: Yes (Death)
  Sender: FDA-Public Use
  Company Number: GB-BOEHRINGER INGELHEIM PHARMACEUTICALS, INC.-2005-UK-00307UK

PATIENT
  Sex: Male

DRUGS (7)
  1. SPIRIVA [Suspect]
  2. DIGOXIN [Suspect]
  3. OMEPRAZOLE [Suspect]
  4. SALMETEROL [Suspect]
  5. NITRAZEPAM [Suspect]
  6. SALBUTAMOL [Suspect]
  7. CO-PROXAMOLE [Suspect]

REACTIONS (2)
  - CHRONIC OBSTRUCTIVE PULMONARY DISEASE [None]
  - EMPHYSEMA [None]
